FAERS Safety Report 6545446-0 (Version None)
Quarter: 2010Q1

REPORT INFORMATION
  Report Type: 
  Country: None (occurrence: None)
  Receive Date: 20100119
  Receipt Date: 20100113
  Transmission Date: 20100710
  Serious: Yes (Life-Threatening, Hospitalization)
  Sender: FDA-Public Use
  Company Number: 2010US000102

PATIENT
  Age: 72 Year
  Sex: Male

DRUGS (3)
  1. LEXISCAN [Suspect]
     Indication: SCAN MYOCARDIAL PERFUSION
     Dosage: UNK, IV NOS
     Route: 042
     Dates: start: 20100113, end: 20100113
  2. AMLODIPINE [Concomitant]
  3. LISINOPRIL [Concomitant]

REACTIONS (6)
  - ARTERIOSPASM CORONARY [None]
  - ATRIOVENTRICULAR BLOCK [None]
  - CARDIO-RESPIRATORY ARREST [None]
  - HYPERSENSITIVITY [None]
  - HYPOTENSION [None]
  - MYOCARDIAL INFARCTION [None]
